FAERS Safety Report 9258854 (Version 1)
Quarter: 2013Q2

REPORT INFORMATION
  Report Type: Spontaneous
  Country: US (occurrence: US)
  Receive Date: 20130426
  Receipt Date: 20130426
  Transmission Date: 20140414
  Serious: Yes (Hospitalization, Other)
  Sender: FDA-Public Use
  Company Number: US-BAYER-2013-051427

PATIENT
  Age: 35 Year
  Sex: Female
  Weight: 99.77 kg

DRUGS (15)
  1. YAZ [Suspect]
     Dosage: UNK
  2. GIANVI [Suspect]
  3. GEODON [Concomitant]
  4. SEROQUEL [Concomitant]
  5. WELLBUTRIN [Concomitant]
  6. PROPRANOLOL [Concomitant]
     Dosage: UNK MG, UNK
  7. AMPHETAMINE SALTS [Concomitant]
     Dosage: UNK
  8. HYDROCODONE [Concomitant]
  9. CLONAZEPAM [Concomitant]
  10. LAMICTAL [Concomitant]
  11. NORCO [Concomitant]
  12. BACLOFEN [Concomitant]
  13. NEURONTIN [Concomitant]
  14. NEXIUM [Concomitant]
  15. METHADONE [Concomitant]

REACTIONS (2)
  - Pulmonary embolism [None]
  - Deep vein thrombosis [None]
